FAERS Safety Report 25681390 (Version 1)
Quarter: 2025Q3

REPORT INFORMATION
  Report Type: Spontaneous
  Country: US (occurrence: None)
  Receive Date: 20250813
  Receipt Date: 20250813
  Transmission Date: 20251021
  Serious: Yes (Hospitalization)
  Sender: FDA-CTU
  Company Number: None

PATIENT
  Age: 48 Year
  Sex: Male

DRUGS (1)
  1. LISINOPRIL [Suspect]
     Active Substance: LISINOPRIL
     Indication: Hypertension
     Dates: start: 20250711, end: 20250806

REACTIONS (6)
  - Cholelithiasis [None]
  - Diarrhoea [None]
  - Hypotension [None]
  - Therapy cessation [None]
  - Acute kidney injury [None]
  - Enterocolitis [None]

NARRATIVE: CASE EVENT DATE: 20250806
